FAERS Safety Report 6698344-6 (Version None)
Quarter: 2010Q2

REPORT INFORMATION
  Report Type: 
  Country: None (occurrence: None)
  Receive Date: 20100427
  Receipt Date: 20100413
  Transmission Date: 20101027
  Serious: Yes (Hospitalization, Other)
  Sender: FDA-Public Use
  Company Number: IE-BAYER-201017698GPV

PATIENT
  Age: 36 Year
  Sex: Female
  Weight: 56 kg

DRUGS (1)
  1. MIRENA [Suspect]
     Indication: CONTRACEPTION
     Dates: start: 20090406

REACTIONS (6)
  - AMENORRHOEA [None]
  - CHEST PAIN [None]
  - DYSPNOEA [None]
  - PANIC ATTACK [None]
  - TACHYCARDIA [None]
  - VENTRICULAR EXTRASYSTOLES [None]
